FAERS Safety Report 17839115 (Version 1)
Quarter: 2020Q2

REPORT INFORMATION
  Report Type: Report from Study
  Country: CZ (occurrence: CZ)
  Receive Date: 20200529
  Receipt Date: 20200529
  Transmission Date: 20200714
  Serious: Yes (Death, Other)
  Sender: FDA-Public Use
  Company Number: CZ-UCBSA-2020021510

PATIENT
  Age: 75 Year
  Sex: Female

DRUGS (1)
  1. CERTOLIZUMAB PEGOL [Suspect]
     Active Substance: CERTOLIZUMAB PEGOL
     Indication: RHEUMATOID ARTHRITIS
     Dosage: 200 MILLIGRAM, EV 2 WEEKS(QOW)
     Dates: start: 20130709, end: 20200301

REACTIONS (2)
  - Breast cancer [Fatal]
  - Wound infection [Recovered/Resolved]

NARRATIVE: CASE EVENT DATE: 20190112
